FAERS Safety Report 16947291 (Version 3)
Quarter: 2024Q2

REPORT INFORMATION
  Report Type: Report from Study
  Country: ES (occurrence: ES)
  Receive Date: 20191022
  Receipt Date: 20240516
  Transmission Date: 20240715
  Serious: Yes (Hospitalization, Other)
  Sender: FDA-Public Use
  Company Number: ES-JNJFOC-20191016554

PATIENT

DRUGS (1)
  1. STELARA [Suspect]
     Active Substance: USTEKINUMAB
     Indication: Crohn^s disease
     Route: 058

REACTIONS (14)
  - Crohn^s disease [Unknown]
  - Appendicitis [Unknown]
  - Laboratory test abnormal [Unknown]
  - Infection [Unknown]
  - Infusion related reaction [Unknown]
  - Off label use [Unknown]
  - Product use issue [Unknown]
  - Anorectal disorder [Unknown]
  - Herpes zoster [Unknown]
  - Subcutaneous abscess [Unknown]
  - Hepatic enzyme increased [Unknown]
  - Lymphopenia [Unknown]
  - Eczema [Unknown]
  - Vasculitis [Unknown]
